FAERS Safety Report 6621910-0 (Version None)
Quarter: 2010Q1

REPORT INFORMATION
  Report Type: 
  Country: None (occurrence: None)
  Receive Date: 20100303
  Receipt Date: 20100210
  Transmission Date: 20100710
  Serious: Yes (Life-Threatening, Hospitalization, Other)
  Sender: FDA-Public Use
  Company Number: TRP_06677_2009

PATIENT
  Sex: Female
  Weight: 62.5057 kg

DRUGS (2)
  1. INFERGEN [Suspect]
     Indication: HEPATITIS C
     Dosage: (15 UG QD) SUBCUTANEOUS
     Route: 058
     Dates: start: 20091006, end: 20091222
  2. RIBAVIRIN [Suspect]
     Indication: HEPATITIS C
     Dosage: (400 MG BID ORAL)
     Route: 048
     Dates: start: 20091006, end: 20091222

REACTIONS (5)
  - ASTHENIA [None]
  - HYPOTENSION [None]
  - PANCYTOPENIA [None]
  - PYREXIA [None]
  - SEPSIS [None]
